FAERS Safety Report 17536790 (Version 1)
Quarter: 2020Q1

REPORT INFORMATION
  Report Type: Spontaneous
  Country: US (occurrence: US)
  Receive Date: 20200313
  Receipt Date: 20200313
  Transmission Date: 20200409
  Serious: Yes (Hospitalization)
  Sender: FDA-Public Use
  Company Number: US-ENDO PHARMACEUTICALS INC-2020-002353

PATIENT
  Sex: Male

DRUGS (1)
  1. AVEED [Suspect]
     Active Substance: TESTOSTERONE UNDECANOATE
     Indication: HIV INFECTION
     Dosage: 3 ML, ONCE EVERY 10WK
     Route: 030
     Dates: start: 20170125

REACTIONS (2)
  - Intracardiac thrombus [Not Recovered/Not Resolved]
  - Off label use [Unknown]
